FAERS Safety Report 4366171-0 (Version None)
Quarter: 2004Q2

REPORT INFORMATION
  Report Type: 
  Country: None (occurrence: None)
  Receive Date: 20040524
  Receipt Date: 20040126
  Transmission Date: 20050107
  Serious: No
  Sender: FDA-Public Use
  Company Number: SU-2004-002086

PATIENT
  Age: 68 Year
  Sex: Male
  Weight: 73.4827 kg

DRUGS (4)
  1. BENICAR [Suspect]
     Indication: HYPERTENSION
     Dosage: 10 MG QD PO
     Route: 048
     Dates: start: 20031108
  2. LIPITOR [Concomitant]
  3. TRICOR [Concomitant]
  4. ASPIRIN [Concomitant]

REACTIONS (1)
  - DEPRESSION [None]
